FAERS Safety Report 13815488 (Version 2)
Quarter: 2017Q3

REPORT INFORMATION
  Report Type: Spontaneous
  Country: US (occurrence: US)
  Receive Date: 20170731
  Receipt Date: 20170801
  Transmission Date: 20171127
  Serious: Yes (Life-Threatening, Other)
  Sender: FDA-Public Use
  Company Number: US-GLAXOSMITHKLINE-US2017117232

PATIENT
  Age: 64 Year
  Sex: Female

DRUGS (6)
  1. ZYRTEC [Concomitant]
     Active Substance: CETIRIZINE HYDROCHLORIDE
     Dosage: UNK UNK, PRN
  2. ALBUTEROL HFA [Concomitant]
     Active Substance: ALBUTEROL SULFATE
     Dosage: UNK UNK, PRN
  3. SINGULAIR [Concomitant]
     Active Substance: MONTELUKAST SODIUM
     Dosage: UNK
  4. NASACORT [Concomitant]
     Active Substance: TRIAMCINOLONE ACETONIDE
  5. BREO ELLIPTA [Suspect]
     Active Substance: FLUTICASONE FUROATE\VILANTEROL TRIFENATATE
     Indication: ASTHMA
     Dosage: 1 PUFF(S), QD
     Route: 055
     Dates: start: 20170717, end: 20170728
  6. CLARITIN [Concomitant]
     Active Substance: LORATADINE

REACTIONS (8)
  - Arthralgia [Unknown]
  - Chest discomfort [Recovering/Resolving]
  - Pain [Recovering/Resolving]
  - Musculoskeletal pain [Recovering/Resolving]
  - Headache [Recovering/Resolving]
  - Gastrooesophageal reflux disease [Unknown]
  - Blood pressure systolic increased [Unknown]
  - Neck pain [Recovering/Resolving]

NARRATIVE: CASE EVENT DATE: 20170720
